FAERS Safety Report 9720360 (Version 2)
Quarter: 2013Q4

REPORT INFORMATION
  Report Type: Spontaneous
  Country: US (occurrence: US)
  Receive Date: 20131129
  Receipt Date: 20131129
  Transmission Date: 20140711
  Serious: Yes (Other)
  Sender: FDA-Public Use
  Company Number: CHPA2013US017497

PATIENT
  Age: 76 Year
  Sex: Male

DRUGS (3)
  1. CVS [Suspect]
     Indication: SMOKING CESSATION THERAPY
     Dosage: 21 MG, QD
     Route: 062
     Dates: start: 2013, end: 2013
  2. CVS [Suspect]
     Indication: SMOKING CESSATION THERAPY
     Dosage: 21 MG, QD
     Route: 062
     Dates: start: 20131003, end: 201311
  3. CONTROL PLP STRENGTH UNKNOWN [Suspect]
     Indication: SMOKING CESSATION THERAPY
     Route: 062

REACTIONS (2)
  - Local swelling [Not Recovered/Not Resolved]
  - Condition aggravated [Not Recovered/Not Resolved]
